FAERS Safety Report 10168466 (Version 1)
Quarter: 2014Q2

REPORT INFORMATION
  Report Type: Spontaneous
  Country: US (occurrence: US)
  Receive Date: 20140513
  Receipt Date: 20140513
  Transmission Date: 20141212
  Serious: No
  Sender: FDA-Public Use
  Company Number: US-009507513-1405USA003982

PATIENT
  Age: 46 Year
  Sex: Male

DRUGS (3)
  1. METHYLPREDNISOLONE SODIUM SUCCINATE [Suspect]
     Indication: GRAFT VERSUS HOST DISEASE
     Dosage: 2 MG/KG, QD
  2. FOSCARNET SODIUM [Concomitant]
     Dosage: 90 MG/KG, QD; FROM DAY +41 THROUGH DAY +53
  3. MYCOPHENOLATE SODIUM [Concomitant]

REACTIONS (1)
  - Drug ineffective [Unknown]
